FAERS Safety Report 9481612 (Version 2)
Quarter: 2013Q3

REPORT INFORMATION
  Report Type: Spontaneous
  Country: US (occurrence: US)
  Receive Date: 20130828
  Receipt Date: 20130828
  Transmission Date: 20140515
  Serious: Yes (Other)
  Sender: FDA-Public Use
  Company Number: US-AMGEN-KDL178816

PATIENT
  Age: 58 Year
  Sex: Female

DRUGS (4)
  1. ENBREL [Suspect]
     Indication: RHEUMATOID ARTHRITIS
     Dosage: 50 MG, QWK
     Route: 058
     Dates: start: 20050901
  2. ENBREL [Suspect]
     Indication: PRODUCT USED FOR UNKNOWN INDICATION
  3. LEFLUNOMIDE [Concomitant]
     Dosage: 20 MG, QD
     Dates: start: 2005
  4. METHOTREXATE [Concomitant]
     Dosage: 7.5 MG, QWK
     Dates: start: 200511

REACTIONS (7)
  - Eye degenerative disorder [Not Recovered/Not Resolved]
  - Raynaud^s phenomenon [Unknown]
  - Condition aggravated [Unknown]
  - Cataract [Not Recovered/Not Resolved]
  - Eye inflammation [Not Recovered/Not Resolved]
  - Dry eye [Unknown]
  - Dysgeusia [Not Recovered/Not Resolved]
